FAERS Safety Report 7448132-8 (Version None)
Quarter: 2011Q2

REPORT INFORMATION
  Report Type: 
  Country: None (occurrence: None)
  Receive Date: 20110429
  Receipt Date: 20100923
  Transmission Date: 20111010
  Serious: No
  Sender: FDA-Public Use
  Company Number: US-ASTRAZENECA-2005UW17191

PATIENT
  Age: 493 Month
  Sex: Female
  Weight: 68 kg

DRUGS (6)
  1. NEXIUM [Suspect]
     Route: 048
     Dates: start: 20100801
  2. SINGULAIR [Concomitant]
     Dates: end: 20051101
  3. NEXIUM [Suspect]
     Indication: ALLERGIC SINUSITIS
     Route: 048
     Dates: start: 20051107
  4. CARAFATE [Concomitant]
  5. NEXIUM [Suspect]
     Indication: REFLUX LARYNGITIS
     Route: 048
     Dates: start: 20051107
  6. NEXIUM [Suspect]
     Route: 048
     Dates: start: 20100801

REACTIONS (3)
  - ABDOMINAL PAIN UPPER [None]
  - BURNING SENSATION [None]
  - DRUG INEFFECTIVE [None]
